FAERS Safety Report 18469322 (Version 1)
Quarter: 2020Q4

REPORT INFORMATION
  Report Type: Report from Study
  Country: US (occurrence: US)
  Receive Date: 20201105
  Receipt Date: 20201105
  Transmission Date: 20210114
  Serious: Yes (Other)
  Sender: FDA-Public Use
  Company Number: US-TAKEDA-2017BLT003407

PATIENT
  Age: 52 Year
  Sex: Male

DRUGS (1)
  1. HUMAN NORMAL IMMUNOGLOBULIN; LIQUID [Suspect]
     Active Substance: HUMAN IMMUNOGLOBULIN G
     Indication: HYPOGAMMAGLOBULINAEMIA
     Route: 042

REACTIONS (4)
  - Heart rate increased [None]
  - Headache [None]
  - Sinusitis [Unknown]
  - Fatigue [Unknown]

NARRATIVE: CASE EVENT DATE: 201704
